FAERS Safety Report 7570391-1 (Version None)
Quarter: 2011Q2

REPORT INFORMATION
  Report Type: 
  Country: None (occurrence: None)
  Receive Date: 20110620
  Receipt Date: 20110603
  Transmission Date: 20111010
  Serious: Yes (Hospitalization)
  Sender: FDA-Public Use
  Company Number: 2011MA006748

PATIENT
  Age: 40 Year
  Sex: Female

DRUGS (6)
  1. HEPARIN [Concomitant]
  2. FLUCONAZOLE [Concomitant]
  3. VALACYCLOVIR [Concomitant]
  4. CYCLOSPORINE [Concomitant]
  5. INSULIN [Concomitant]
  6. SULFATRIM PEDIATRIC [Suspect]
     Indication: CHRONIC MYELOID LEUKAEMIA

REACTIONS (1)
  - ACUTE GENERALISED EXANTHEMATOUS PUSTULOSIS [None]
